FAERS Safety Report 8389383-8 (Version None)
Quarter: 2012Q2

REPORT INFORMATION
  Report Type: 
  Country: None (occurrence: None)
  Receive Date: 20120528
  Receipt Date: 20120515
  Transmission Date: 20120825
  Serious: No
  Sender: FDA-Public Use
  Company Number: US-BAYER-2012-048860

PATIENT
  Age: 78 Year
  Sex: Male
  Weight: 88 kg

DRUGS (3)
  1. NAPROXEN SODIUM [Suspect]
     Indication: ARTHRITIS
     Dosage: 2 DF, BID
     Route: 048
     Dates: start: 20120501
  2. SIMVASTATIN [Concomitant]
  3. AZOR [Concomitant]

REACTIONS (1)
  - CONSTIPATION [None]
